FAERS Safety Report 12343179 (Version 1)
Quarter: 2016Q2

REPORT INFORMATION
  Report Type: Report from Study
  Country: US (occurrence: US)
  Receive Date: 20160506
  Receipt Date: 20160506
  Transmission Date: 20160815
  Serious: Yes (Hospitalization)
  Sender: FDA-Public Use
  Company Number: US-BIOGEN-2013BI068481

PATIENT
  Age: 56 Year
  Sex: Female

DRUGS (4)
  1. TECFIDERA [Suspect]
     Active Substance: DIMETHYL FUMARATE
     Dates: start: 20130620, end: 20131001
  2. TECFIDERA [Suspect]
     Active Substance: DIMETHYL FUMARATE
     Dates: end: 20131001
  3. TECFIDERA [Suspect]
     Active Substance: DIMETHYL FUMARATE
     Dosage: MAINTENANCE DOSE
     Route: 048
     Dates: start: 2014, end: 2014
  4. TECFIDERA [Suspect]
     Active Substance: DIMETHYL FUMARATE
     Indication: MULTIPLE SCLEROSIS
     Dosage: STARTING DOSE
     Route: 048
     Dates: start: 20130516

REACTIONS (14)
  - Fall [Recovered/Resolved]
  - Rash [Recovered/Resolved]
  - Rash generalised [Recovered/Resolved]
  - Flushing [Recovered/Resolved]
  - Dermatitis allergic [Recovered/Resolved]
  - Multiple sclerosis [Not Recovered/Not Resolved]
  - Open fracture [Recovered/Resolved]
  - Oedema peripheral [Not Recovered/Not Resolved]
  - Heart rate increased [Not Recovered/Not Resolved]
  - Concussion [Recovered/Resolved]
  - Pyrexia [Recovered/Resolved]
  - Memory impairment [Not Recovered/Not Resolved]
  - Hypoaesthesia [Unknown]
  - Chills [Recovered/Resolved]

NARRATIVE: CASE EVENT DATE: 20130805
